FAERS Safety Report 16933239 (Version 2)
Quarter: 2020Q4

REPORT INFORMATION
  Report Type: Report from Study
  Country: JP (occurrence: JP)
  Receive Date: 20191018
  Receipt Date: 20201119
  Transmission Date: 20210113
  Serious: Yes (Hospitalization, Other)
  Sender: FDA-Public Use
  Company Number: JP-VIIV HEALTHCARE LIMITED-JP2018JPN211229

PATIENT
  Age: 28 Year
  Sex: Male

DRUGS (5)
  1. GENTACIN OINTMENT [Concomitant]
     Indication: HAEMORRHOIDS
     Dosage: UNK
     Dates: start: 20181128, end: 20200120
  2. DOLUTEGRAVIR [Suspect]
     Active Substance: DOLUTEGRAVIR
     Indication: HIV INFECTION
     Dosage: 50 MG, 1D
     Route: 048
     Dates: start: 20171003
  3. EPINASTINE. [Concomitant]
     Active Substance: EPINASTINE HYDROCHLORIDE
     Dosage: UNK
     Dates: start: 20171003, end: 201712
  4. DESCOVY [Suspect]
     Active Substance: EMTRICITABINE\TENOFOVIR ALAFENAMIDE FUMARATE
     Indication: HIV INFECTION
     Dosage: 1 DF, 1D
     Route: 048
     Dates: start: 20171003
  5. BORRAZA-G [Concomitant]
     Active Substance: LIDOCAINE\TRIBENOSIDE
     Indication: HAEMORRHOIDS
     Dosage: UNK
     Dates: start: 20180131, end: 20200120

REACTIONS (6)
  - Acne [Recovering/Resolving]
  - Tinea pedis [Recovering/Resolving]
  - Blood uric acid increased [Recovered/Resolved]
  - Concussion [Recovered/Resolved]
  - Pruritus genital [Recovering/Resolving]
  - Pharyngeal chlamydia infection [Recovering/Resolving]

NARRATIVE: CASE EVENT DATE: 20171124
